FAERS Safety Report 5821199-6 (Version None)
Quarter: 2008Q3

REPORT INFORMATION
  Report Type: 
  Country: None (occurrence: None)
  Receive Date: 20080724
  Receipt Date: 20080716
  Transmission Date: 20090109
  Serious: Yes (Death)
  Sender: FDA-Public Use
  Company Number: IN-BAXTER-2008BH005982

PATIENT
  Age: 68 Year
  Sex: Female
  Weight: 49 kg

DRUGS (11)
  1. DIANEAL [Suspect]
     Indication: PERITONEAL DIALYSIS
     Route: 033
     Dates: start: 20080501, end: 20080606
  2. DIANEAL [Suspect]
     Route: 033
     Dates: start: 20080501, end: 20080606
  3. DIANEAL [Suspect]
     Dates: start: 20070601, end: 20080501
  4. MAGNEX [Concomitant]
     Indication: DRUG USE FOR UNKNOWN INDICATION
     Route: 042
     Dates: start: 20080604, end: 20080606
  5. MAGNAMYCIN [Concomitant]
     Indication: DRUG USE FOR UNKNOWN INDICATION
     Route: 042
     Dates: start: 20080604, end: 20080606
  6. ACTRAPID [Concomitant]
     Indication: DRUG USE FOR UNKNOWN INDICATION
     Dates: end: 20080606
  7. ACTRAPID [Concomitant]
     Dates: end: 20080606
  8. ACTRAPID [Concomitant]
     Dates: end: 20080606
  9. ROCALTROL [Concomitant]
     Indication: DRUG USE FOR UNKNOWN INDICATION
     Dates: end: 20080606
  10. ECOSPRIN [Concomitant]
     Indication: DRUG USE FOR UNKNOWN INDICATION
     Dates: end: 20080606
  11. FOLIC ACID [Concomitant]
     Indication: DRUG USE FOR UNKNOWN INDICATION
     Dates: end: 20080606

REACTIONS (4)
  - CARDIAC ARREST [None]
  - CARDIAC DISORDER [None]
  - DYSPNOEA [None]
  - HYPOTENSION [None]
